FAERS Safety Report 10159982 (Version 1)
Quarter: 2014Q2

REPORT INFORMATION
  Report Type: Spontaneous
  Country: US (occurrence: US)
  Receive Date: 20140508
  Receipt Date: 20140508
  Transmission Date: 20141212
  Serious: No
  Sender: FDA-Public Use
  Company Number: US-GLAXOSMITHKLINE-A1050262A

PATIENT
  Age: 58 Year
  Sex: Female

DRUGS (19)
  1. TYKERB [Suspect]
     Indication: BREAST CANCER
     Dosage: 5TAB PER DAY
     Route: 048
     Dates: start: 20130119
  2. XELODA [Concomitant]
  3. METFORMIN [Concomitant]
  4. AMARYL [Concomitant]
  5. METOPROLOL [Concomitant]
  6. LIPITOR [Concomitant]
  7. XANAX [Concomitant]
  8. ASPIRIN [Concomitant]
  9. PERCOCET [Concomitant]
  10. ALLEGRA [Concomitant]
  11. COQ10 [Concomitant]
  12. VITAMIN D [Concomitant]
  13. FISH OIL [Concomitant]
  14. CALCIUM [Concomitant]
  15. IRON [Concomitant]
  16. MULTI-VITAMIN [Concomitant]
  17. COLACE [Concomitant]
  18. SENNA [Concomitant]
  19. ZOFRAN [Concomitant]

REACTIONS (1)
  - Vomiting [Recovered/Resolved]
